FAERS Safety Report 10211001 (Version 1)
Quarter: 2014Q2

REPORT INFORMATION
  Report Type: Spontaneous
  Country: US (occurrence: None)
  Receive Date: 20140530
  Receipt Date: 20140530
  Transmission Date: 20141212
  Serious: No
  Sender: FDA-Public Use
  Company Number: None

PATIENT
  Age: 45 Year
  Sex: Female

DRUGS (1)
  1. ENBREL SURECLICK 50MG AMGEN INC [Suspect]
     Indication: ANKYLOSING SPONDYLITIS
     Dosage: 50MG, ONCE WEEKLY, SUBQ
     Dates: start: 20140506, end: 20140528

REACTIONS (1)
  - Hypersensitivity [None]
